FAERS Safety Report 11377528 (Version 1)
Quarter: 2015Q3

REPORT INFORMATION
  Report Type: Spontaneous
  Country: US (occurrence: US)
  Receive Date: 20150811
  Receipt Date: 20150811
  Transmission Date: 20151125
  Serious: Yes (Other)
  Sender: FDA-Public Use
  Company Number: US-ELI_LILLY_AND_COMPANY-US200901001540

PATIENT
  Sex: Female

DRUGS (3)
  1. HUMULIN R [Suspect]
     Active Substance: INSULIN HUMAN
     Dosage: UNK, UNK
     Dates: start: 200810
  2. HUMULIN N [Suspect]
     Active Substance: INSULIN HUMAN
     Dosage: UNK, UNK
     Dates: start: 200810
  3. NOVOLIN [Concomitant]
     Active Substance: INSULIN HUMAN

REACTIONS (8)
  - Hypoglycaemic unconsciousness [Recovered/Resolved]
  - Abnormal behaviour [Unknown]
  - Hypoglycaemic unconsciousness [Recovered/Resolved]
  - Urinary tract infection [Unknown]
  - Confusional state [Unknown]
  - Screaming [Unknown]
  - Feeling abnormal [Unknown]
  - Adverse drug reaction [Unknown]

NARRATIVE: CASE EVENT DATE: 200810
